FAERS Safety Report 4319437-4 (Version None)
Quarter: 2004Q1

REPORT INFORMATION
  Report Type: 
  Country: None (occurrence: None)
  Receive Date: 20040318
  Receipt Date: 20040318
  Transmission Date: 20041129
  Serious: Yes (Hospitalization)
  Sender: FDA-Public Use
  Company Number: None

PATIENT
  Age: 30 Year
  Sex: Male
  Weight: 74.8435 kg

DRUGS (1)
  1. VALTREX [Suspect]
     Indication: HERPES SIMPLEX
     Dosage: 500 MG 2 DOSES ORAL
     Route: 048
     Dates: start: 20040220, end: 20040227

REACTIONS (4)
  - DIARRHOEA [None]
  - PURPURA [None]
  - RASH MACULAR [None]
  - VOMITING [None]
